FAERS Safety Report 4678484-3 (Version None)
Quarter: 2005Q2

REPORT INFORMATION
  Report Type: 
  Country: None (occurrence: None)
  Receive Date: 20050601
  Receipt Date: 20050118
  Transmission Date: 20051028
  Serious: Yes (Disabling)
  Sender: FDA-Public Use
  Company Number: US-ROCHE-393026

PATIENT
  Age: 54 Year
  Sex: Male
  Weight: 70.8 kg

DRUGS (10)
  1. PEG-INTERFERON ALFA 2A (RO 25-8310) [Suspect]
     Dosage: DOSE WAS INCREASED TO 135 MCG AT WEEK 24 VISIT.
     Route: 058
     Dates: start: 20041122, end: 20050118
  2. PEG-INTERFERON ALFA 2A (RO 25-8310) [Suspect]
     Route: 058
     Dates: start: 20040614, end: 20040927
  3. PEG-INTERFERON ALFA 2A (RO 25-8310) [Suspect]
     Dosage: DOSE WAS LOWERED TO 135 MCG FOLLOWING THE WEEK 16 VISIT.
     Route: 058
     Dates: start: 20040928
  4. PEG-INTERFERON ALFA 2A (RO 25-8310) [Suspect]
     Route: 058
  5. PEG-INTERFERON ALFA 2A (RO 25-8310) [Suspect]
     Route: 058
     Dates: start: 20050131
  6. RIBAVIRIN [Suspect]
     Route: 048
     Dates: start: 20040614
  7. MULTIPLE VITS [Concomitant]
     Dates: start: 20040809
  8. CARAFATE [Concomitant]
     Dates: start: 20040802
  9. LIDOCAINE [Concomitant]
     Dosage: VISCOUS LIDOCAINE.
     Dates: start: 20040907
  10. MOTRIN [Concomitant]
     Dates: start: 20050103

REACTIONS (8)
  - CERUMEN IMPACTION [None]
  - DEAFNESS [None]
  - DIFFICULTY IN WALKING [None]
  - DIZZINESS POSTURAL [None]
  - EAR INFECTION [None]
  - NEUTROPENIA [None]
  - PURULENCE [None]
  - TINNITUS [None]
